FAERS Safety Report 8247430-8 (Version None)
Quarter: 2012Q1

REPORT INFORMATION
  Report Type: 
  Country: None (occurrence: None)
  Receive Date: 20120327
  Receipt Date: 20120313
  Transmission Date: 20120608
  Serious: Yes (Other)
  Sender: FDA-Public Use
  Company Number: DSJ-2012-05039

PATIENT
  Age: 9 Decade
  Sex: Female

DRUGS (7)
  1. ATENOLOL [Concomitant]
  2. EZETIMIBE/SAMVASTATIN [Concomitant]
  3. ISOSORBIDE DINITRATE [Concomitant]
  4. SIMVASTATIN [Concomitant]
  5. BENICAR HCT [Suspect]
     Indication: HYPERTENSION
     Dosage: 40/12.5 MG (1 IN 1 D),PER ORAL, 20/12.5 MG (1 IN 1 D),PER ORAL, 10/6.25 MG (1 IN 2 D), PER ORAL
     Route: 048
     Dates: start: 20080101, end: 20120201
  6. BENICAR HCT [Suspect]
     Indication: HYPERTENSION
     Dosage: 40/12.5 MG (1 IN 1 D),PER ORAL, 20/12.5 MG (1 IN 1 D),PER ORAL, 10/6.25 MG (1 IN 2 D), PER ORAL
     Route: 048
     Dates: start: 20120201, end: 20120201
  7. BENICAR HCT [Suspect]
     Indication: HYPERTENSION
     Dosage: 40/12.5 MG (1 IN 1 D),PER ORAL, 20/12.5 MG (1 IN 1 D),PER ORAL, 10/6.25 MG (1 IN 2 D), PER ORAL
     Route: 048
     Dates: start: 20120201

REACTIONS (6)
  - FACIAL PARESIS [None]
  - ARTERIOSCLEROSIS [None]
  - HYPOTENSION [None]
  - DRUG ADMINISTRATION ERROR [None]
  - MALAISE [None]
  - ANEURYSM [None]
